FAERS Safety Report 14297860 (Version 2)
Quarter: 2018Q1

REPORT INFORMATION
  Report Type: Spontaneous
  Country: CA (occurrence: CA)
  Receive Date: 20171218
  Receipt Date: 20180330
  Transmission Date: 20180509
  Serious: Yes (Other)
  Sender: FDA-Public Use
  Company Number: CA-GLAXOSMITHKLINE-CA2017194268

PATIENT
  Sex: Female

DRUGS (1)
  1. NICORETTE [Suspect]
     Active Substance: NICOTINE
     Indication: SMOKING CESSATION THERAPY
     Dosage: 2 MG, UNK
     Route: 048
     Dates: end: 2017

REACTIONS (5)
  - Dysphonia [Not Recovered/Not Resolved]
  - Nicotine dependence [Recovered/Resolved]
  - Choking [Recovered/Resolved]
  - Intentional product use issue [Unknown]
  - Cough [Not Recovered/Not Resolved]
